FAERS Safety Report 7235690-1 (Version None)
Quarter: 2011Q1

REPORT INFORMATION
  Report Type: 
  Country: None (occurrence: None)
  Receive Date: 20110110
  Receipt Date: 20101123
  Transmission Date: 20110831
  Serious: Yes (Other)
  Sender: FDA-Public Use
  Company Number: ACO_20602_2010

PATIENT
  Age: 55 Year
  Sex: Female
  Weight: 64.9 kg

DRUGS (6)
  1. BACLOFEN [Concomitant]
  2. COPAXONE [Concomitant]
  3. AMPYRA [Suspect]
     Indication: GAIT DISTURBANCE
     Dosage: 10 MG, BID, ORAL
     Route: 048
     Dates: start: 20101101
  4. AMPYRA [Suspect]
     Indication: GAIT DISTURBANCE
     Dosage: 10 MG, BID, ORAL
     Route: 048
     Dates: start: 20100820, end: 20100831
  5. OXYBUTYNIN CHLORIDE [Concomitant]
  6. TYSABRI [Concomitant]

REACTIONS (4)
  - MULTIPLE SCLEROSIS RELAPSE [None]
  - HYPOAESTHESIA [None]
  - DIPLOPIA [None]
  - GAIT DISTURBANCE [None]
